FAERS Safety Report 10714180 (Version 1)
Quarter: 2015Q1

REPORT INFORMATION
  Report Type: Spontaneous
  Country: US (occurrence: US)
  Receive Date: 20150115
  Receipt Date: 20150115
  Transmission Date: 20150721
  Serious: Yes (Death, Hospitalization)
  Sender: FDA-Public Use
  Company Number: US-BAYER-2015-004529

PATIENT
  Age: 17 Year
  Sex: Male

DRUGS (4)
  1. CHLORPHENIRAMINE [Suspect]
     Active Substance: CHLORPHENIRAMINE
     Route: 048
  2. OXYCODONE [Suspect]
     Active Substance: OXYCODONE
     Route: 048
  3. ROMILAR [Suspect]
     Active Substance: DEXTROMETHORPHAN HYDROBROMIDE
     Route: 048
  4. CODEINE [Suspect]
     Active Substance: CODEINE
     Route: 048

REACTIONS (1)
  - Toxicity to various agents [Fatal]
